FAERS Safety Report 20089159 (Version 1)
Quarter: 2021Q4

REPORT INFORMATION
  Report Type: Spontaneous
  Country: US (occurrence: None)
  Receive Date: 20211119
  Receipt Date: 20211119
  Transmission Date: 20220304
  Serious: Yes (Death)
  Sender: FDA-Public Use
  Company Number: US-ROCHE-2955174

PATIENT
  Sex: Male
  Weight: 115.77 kg

DRUGS (17)
  1. OCREVUS [Suspect]
     Active Substance: OCRELIZUMAB
     Indication: Relapsing-remitting multiple sclerosis
     Dosage: FOLLOWING OCR INFUSIONS: 6/15/2020, 12/15/2020, 6/21/21 (LAST OCR INFUSION)
     Route: 065
     Dates: start: 201906
  2. OCREVUS [Suspect]
     Active Substance: OCRELIZUMAB
     Route: 065
     Dates: start: 20191213
  3. TYLENOL [Concomitant]
     Active Substance: ACETAMINOPHEN
  4. ASPIRIN [Concomitant]
     Active Substance: ASPIRIN
  5. AZITHROMYCIN [Concomitant]
     Active Substance: AZITHROMYCIN
  6. CEFTRIAXONE [Concomitant]
     Active Substance: CEFTRIAXONE
  7. DEXAMETHASONE [Concomitant]
     Active Substance: DEXAMETHASONE
  8. DONEPEZIL [Concomitant]
     Active Substance: DONEPEZIL
  9. MIDAZOLAM [Concomitant]
     Active Substance: MIDAZOLAM
  10. EPOPROSTENOL [Concomitant]
     Active Substance: EPOPROSTENOL
  11. INSULIN NOS [Concomitant]
     Active Substance: INSULIN NOS
  12. KETAMINE [Concomitant]
     Active Substance: KETAMINE
  13. NOREPINEPHRINE [Concomitant]
     Active Substance: NOREPINEPHRINE
  14. REBIF [Concomitant]
     Active Substance: INTERFERON BETA-1A
  15. COPAXONE [Concomitant]
     Active Substance: GLATIRAMER ACETATE
  16. BETASERON [Concomitant]
     Active Substance: INTERFERON BETA-1B
  17. TECFIDERA [Concomitant]
     Active Substance: DIMETHYL FUMARATE

REACTIONS (1)
  - COVID-19 [Fatal]
